FAERS Safety Report 4353565-2 (Version None)
Quarter: 2004Q2

REPORT INFORMATION
  Report Type: 
  Country: None (occurrence: None)
  Receive Date: 20040505
  Receipt Date: 20040430
  Transmission Date: 20050107
  Serious: Yes (Hospitalization)
  Sender: FDA-Public Use
  Company Number: ESPFI-S-20030019

PATIENT
  Age: 54 Year
  Sex: Female

DRUGS (1)
  1. NAVELBINE [Suspect]
     Indication: BREAST CANCER
     Dosage: 55MG SEE DOSAGE TEXT
     Route: 042

REACTIONS (3)
  - APHONIA [None]
  - FEBRILE NEUTROPENIA [None]
  - HEADACHE [None]
